FAERS Safety Report 7391427-7 (Version None)
Quarter: 2011Q2

REPORT INFORMATION
  Report Type: 
  Country: None (occurrence: None)
  Receive Date: 20110404
  Receipt Date: 20110307
  Transmission Date: 20111010
  Serious: No
  Sender: FDA-Public Use
  Company Number: US-B.I. PHARMACEUTICALS,INC./RIDGEFIELD-2011-BP-07798BP

PATIENT
  Age: 76 Year
  Sex: Male

DRUGS (7)
  1. MECLIZINE [Concomitant]
     Indication: VERTIGO
  2. PRADAXA [Suspect]
     Indication: ATRIAL FIBRILLATION
     Dosage: 300 MG
     Route: 048
     Dates: start: 20101201
  3. DILTIAZEM [Concomitant]
     Indication: HYPERTENSION
  4. TRIAMTERENE [Concomitant]
     Indication: OEDEMA PERIPHERAL
  5. PRILOSEC OTC [Concomitant]
     Indication: GASTROOESOPHAGEAL REFLUX DISEASE
  6. SAW PALMETTO [Concomitant]
     Indication: BENIGN PROSTATIC HYPERPLASIA
  7. NEURO OPTIMISER [Concomitant]
     Indication: AMNESIA

REACTIONS (3)
  - ABDOMINAL PAIN UPPER [None]
  - CONTUSION [None]
  - ASTHENIA [None]
